FAERS Safety Report 4850348-1 (Version None)
Quarter: 2005Q4

REPORT INFORMATION
  Report Type: 
  Country: None (occurrence: None)
  Receive Date: 20051123
  Receipt Date: 20051012
  Transmission Date: 20060501
  Serious: No
  Sender: FDA-Public Use
  Company Number: 218590

PATIENT
  Age: 25 Year
  Sex: Male

DRUGS (1)
  1. RAPTIVA [Suspect]
     Indication: PSORIASIS
     Dosage: 0.7 ML, 1/WEK, UNK
     Dates: start: 20051005

REACTIONS (3)
  - HEADACHE [None]
  - SWELLING FACE [None]
  - TENDERNESS [None]
